FAERS Safety Report 11545302 (Version 2)
Quarter: 2015Q4

REPORT INFORMATION
  Report Type: Spontaneous
  Country: FR (occurrence: FR)
  Receive Date: 20150924
  Receipt Date: 20151019
  Transmission Date: 20160304
  Serious: Yes (Death, Hospitalization)
  Sender: FDA-Public Use
  Company Number: FR-SA-2015SA143110

PATIENT
  Age: 74 Year
  Sex: Female

DRUGS (18)
  1. MONO-TILDIEM [Concomitant]
     Active Substance: DILTIAZEM HYDROCHLORIDE
  2. FUROSEMIDE. [Concomitant]
     Active Substance: FUROSEMIDE
  3. CALCIDOSE [Concomitant]
     Active Substance: CALCIUM CARBONATE
  4. KALEORID [Concomitant]
     Active Substance: POTASSIUM CHLORIDE
  5. ATENOLOL. [Concomitant]
     Active Substance: ATENOLOL
  6. INNOHEP [Concomitant]
     Active Substance: TINZAPARIN SODIUM
     Dates: start: 2015
  7. LEVOTHYROX [Concomitant]
     Active Substance: LEVOTHYROXINE
  8. XANAX [Concomitant]
     Active Substance: ALPRAZOLAM
  9. ESOMEPRAZOLE [Concomitant]
     Active Substance: ESOMEPRAZOLE
  10. CORTANCYL [Suspect]
     Active Substance: PREDNISONE
     Route: 065
  11. SKENAN [Concomitant]
     Active Substance: MORPHINE SULFATE
  12. DESLORATADINE. [Concomitant]
     Active Substance: DESLORATADINE
  13. LYRICA [Suspect]
     Active Substance: PREGABALIN
     Route: 065
  14. CITALOPRAM [Concomitant]
     Active Substance: CITALOPRAM HYDROBROMIDE
  15. COUMADINE [Concomitant]
     Active Substance: WARFARIN SODIUM
     Dates: end: 201505
  16. LONOTEN [Suspect]
     Active Substance: MINOXIDIL
     Route: 048
     Dates: end: 201508
  17. TERBINAFINE. [Concomitant]
     Active Substance: TERBINAFINE
  18. ARAVA [Suspect]
     Active Substance: LEFLUNOMIDE
     Route: 048
     Dates: end: 20150813

REACTIONS (1)
  - Skin necrosis [Recovering/Resolving]

NARRATIVE: CASE EVENT DATE: 201505
